FAERS Safety Report 21275438 (Version 1)
Quarter: 2022Q3

REPORT INFORMATION
  Report Type: Report from Study
  Country: DE (occurrence: DE)
  Receive Date: 20220831
  Receipt Date: 20220831
  Transmission Date: 20221026
  Serious: Yes (Hospitalization)
  Sender: FDA-Public Use
  Company Number: DE-NOVARTISPH-NVSC2022DE193094

PATIENT
  Sex: Male

DRUGS (28)
  1. UNSPECIFIED INGREDIENT [Suspect]
     Active Substance: UNSPECIFIED INGREDIENT
     Indication: Product used for unknown indication
     Dosage: UNK
     Route: 065
  2. LEFLUNOMIDE [Suspect]
     Active Substance: LEFLUNOMIDE
     Indication: Rheumatoid arthritis
     Dosage: 15 MG (15 MILLIGRAM)
     Route: 065
     Dates: start: 20150527
  3. LEFLUNOMIDE [Suspect]
     Active Substance: LEFLUNOMIDE
     Dosage: 10 MG (10 MILLIGRAM)
     Route: 065
     Dates: start: 20151209
  4. LEFLUNOMIDE [Suspect]
     Active Substance: LEFLUNOMIDE
     Dosage: 10 MG (10 MILLIGRAM)
     Route: 065
     Dates: start: 20160602
  5. LEFLUNOMIDE [Suspect]
     Active Substance: LEFLUNOMIDE
     Dosage: 10 MG (10 MILLIGRAM)
     Route: 065
     Dates: start: 20161201
  6. LEFLUNOMIDE [Suspect]
     Active Substance: LEFLUNOMIDE
     Dosage: 10 MG (10 MILLIGRAM)
     Route: 065
     Dates: start: 20170601
  7. LEFLUNOMIDE [Suspect]
     Active Substance: LEFLUNOMIDE
     Dosage: 10 MG (10 MILLIGRAM)
     Route: 065
     Dates: start: 20171212
  8. LEFLUNOMIDE [Suspect]
     Active Substance: LEFLUNOMIDE
     Dosage: 10 MG (10 MILLIGRAM)
     Route: 065
     Dates: start: 20180612
  9. LEFLUNOMIDE [Suspect]
     Active Substance: LEFLUNOMIDE
     Dosage: 10 MG (10 MILLIGRAM)
     Route: 065
     Dates: start: 20181213
  10. LEFLUNOMIDE [Suspect]
     Active Substance: LEFLUNOMIDE
     Dosage: 10 MG (10 MILLIGRAM)
     Route: 065
     Dates: start: 20190926
  11. LEFLUNOMIDE [Suspect]
     Active Substance: LEFLUNOMIDE
     Dosage: 10 MG (10 MILLIGRAM)
     Route: 065
     Dates: start: 20200313
  12. LEFLUNOMIDE [Suspect]
     Active Substance: LEFLUNOMIDE
     Dosage: 10 MG (10 MILLIGRAM)
     Route: 065
     Dates: start: 20200702
  13. LEFLUNOMIDE [Suspect]
     Active Substance: LEFLUNOMIDE
     Dosage: 10 MG (10 MILLIGRAM)
     Route: 065
     Dates: start: 20210118
  14. METHOTREXATE [Suspect]
     Active Substance: METHOTREXATE
     Indication: Rheumatoid arthritis
     Dosage: 15 MG (15 MILLIGRAM)
     Route: 065
     Dates: start: 20140604
  15. METHOTREXATE [Suspect]
     Active Substance: METHOTREXATE
     Dosage: 15 MG (15 MILLIGRAM)
     Route: 065
     Dates: start: 20140904
  16. METHOTREXATE [Suspect]
     Active Substance: METHOTREXATE
     Dosage: 15 MG (15 MILLIGRAM)
     Route: 065
     Dates: start: 20141127
  17. METHOTREXATE [Suspect]
     Active Substance: METHOTREXATE
     Dosage: 15 MG (15 MILLIGRAM)
     Route: 065
     Dates: start: 20150527
  18. METHOTREXATE [Suspect]
     Active Substance: METHOTREXATE
     Dosage: 15 MG (15 MILLIGRAM)
     Route: 065
     Dates: start: 20151209
  19. METHOTREXATE [Suspect]
     Active Substance: METHOTREXATE
     Dosage: 15 MG (15 MILLIGRAM)
     Route: 065
     Dates: start: 20160602
  20. METHOTREXATE [Suspect]
     Active Substance: METHOTREXATE
     Dosage: 15 MG (15 MILLIGRAM)
     Route: 065
     Dates: start: 20161201
  21. METHOTREXATE [Suspect]
     Active Substance: METHOTREXATE
     Dosage: 15 MG (15 MILLIGRAM)
     Route: 065
     Dates: start: 20170601
  22. METHOTREXATE [Suspect]
     Active Substance: METHOTREXATE
     Dosage: 15 MG (15 MILLIGRAM)
     Route: 065
     Dates: start: 20171212
  23. METHOTREXATE [Suspect]
     Active Substance: METHOTREXATE
     Dosage: 15 MG (15 MILLIGRAM)
     Route: 065
     Dates: start: 20180612
  24. METHOTREXATE [Suspect]
     Active Substance: METHOTREXATE
     Dosage: 15 MG (15 MILLIGRAM)
     Route: 065
     Dates: start: 20181213
  25. METHOTREXATE [Suspect]
     Active Substance: METHOTREXATE
     Dosage: 15 MG (15 MILLIGRAM)
     Route: 065
     Dates: start: 20190926
  26. METHOTREXATE [Suspect]
     Active Substance: METHOTREXATE
     Dosage: 15 MG (15 MILLIGRAM)
     Route: 065
     Dates: start: 20200313
  27. METHOTREXATE [Suspect]
     Active Substance: METHOTREXATE
     Dosage: 15 MG (15 MILLIGRAM)
     Route: 065
     Dates: start: 20200702
  28. METHOTREXATE [Suspect]
     Active Substance: METHOTREXATE
     Dosage: 15 MG (15 MILLIGRAM)
     Route: 065
     Dates: start: 20210118

REACTIONS (2)
  - Peripheral arterial occlusive disease [Recovered/Resolved]
  - Arterial occlusive disease [Recovered/Resolved]

NARRATIVE: CASE EVENT DATE: 20180801
